FAERS Safety Report 9778965 (Version 2)
Quarter: 2013Q4

REPORT INFORMATION
  Report Type: Spontaneous
  Country: US (occurrence: US)
  Receive Date: 20131223
  Receipt Date: 20131223
  Transmission Date: 20140711
  Serious: Yes (Disabling, Other)
  Sender: FDA-Public Use
  Company Number: US-UCBSA-099681

PATIENT
  Age: 58 Year
  Sex: Male
  Weight: 92.98 kg

DRUGS (24)
  1. ISOSORBIDE MONONITRATE [Suspect]
     Indication: ANGINA PECTORIS
     Dosage: 60 MG 3 TABLET ONCE A DAY
     Route: 048
     Dates: start: 20130315
  2. ISOSORBIDE MONONITRATE [Suspect]
     Indication: ANGINA PECTORIS
     Dosage: UNKNOWN DOSE
     Route: 048
     Dates: start: 20100422
  3. ACETAMINOPHEN [Concomitant]
     Indication: PAIN
     Dosage: 325 MG TAB; 2 TABLETS BY MOUTH FOUR TIMES A DAY AS NEEDED; MAX 4000 MG PER DAY
     Route: 048
  4. ACETAMINOPHEN [Concomitant]
     Indication: PYREXIA
     Dosage: 325 MG TAB; 2 TABLETS BY MOUTH FOUR TIMES A DAY AS NEEDED; MAX 4000 MG PER DAY
     Route: 048
  5. ALBUTEROL/IPRATRO [Concomitant]
     Indication: WHEEZING
     Dosage: ALBUTEROL 100/IPRATRO 20MCG 120D ORAL INHALATION; INHALE 1 PUFF BY MOUTH FOUR TIMES A DAY
  6. ASCORBIC ACID [Concomitant]
     Indication: VITAMIN SUPPLEMENTATION
     Dosage: 500 MG TABLET; TAKE WITH FERROUS SULFATE
     Route: 048
  7. ASPIRIN [Concomitant]
     Indication: PAIN
     Dosage: 81 MG EC TABLET BY MOUTH EVERY DAY; TAKE WITH FOOD.
     Route: 048
  8. ASPIRIN [Concomitant]
     Indication: PYREXIA
     Dosage: 81 MG EC TABLET BY MOUTH EVERY DAY; TAKE WITH FOOD.
     Route: 048
  9. ASPIRIN [Concomitant]
     Indication: CARDIAC DISORDER
     Dosage: 81 MG EC TABLET BY MOUTH EVERY DAY; TAKE WITH FOOD.
     Route: 048
  10. ATENOLOL [Concomitant]
     Indication: CARDIAC DISORDER
     Dosage: TAKE ON EMPTY STOMACH
     Route: 048
  11. ATENOLOL [Concomitant]
     Indication: BLOOD PRESSURE
     Dosage: TAKE ON EMPTY STOMACH
     Route: 048
  12. ATORVASTATIN CALCIUM [Concomitant]
     Indication: BLOOD CHOLESTEROL
     Dosage: TAKE HALF TABLET DAILY
     Route: 048
  13. BACLOFEN [Concomitant]
     Indication: ARTHRALGIA
     Dosage: AT BEDTIME
     Route: 048
  14. CARBOXYMETHYLCELLULOSE NA [Concomitant]
     Dosage: INSTILL 1 DROP OF CARBOXYMETHYLCELLULOSE NA 1% OPH SOLUTION IN BOTH EYES FOUR TIMES A DAY
  15. FERROUS SULFATE [Concomitant]
     Route: 048
  16. FUROSEMIDE [Concomitant]
     Dosage: 1/2 TABLET ORALLY ON MONDAY, WEDNESDAY AND FRIDAY FOR 15 DAYS THEN TAKE 1/2 TABLET DAILY AS NEEDED
     Route: 048
  17. HYDROXYZINE PAMOATE [Concomitant]
     Indication: ANXIETY
     Dosage: ONE CAPSULE ORALLY TWICE A DAYAS NEEDED AND TAKE 4 CAPSULES AT BEDTIME AS NEEDED
     Route: 048
  18. METFORMIN HCL [Concomitant]
     Indication: BLOOD GLUCOSE INCREASED
     Route: 048
  19. NITROSTAT [Concomitant]
     Indication: CHEST PAIN
     Dosage: DISSOLVE 1 TABLET UNDER THE TONGUE EVERY 5 MIN AS NEEDED (MAY REPEAT 3 TIMES);
  20. OMEPRAZOLE [Concomitant]
     Dosage: 40 MG EC CAPSULE; ONE CAPSULE DAILY; TAKE 30 MINUTES BEFORE A MEAL.
     Route: 048
  21. SERTRALINE [Concomitant]
     Indication: DEPRESSION
     Route: 048
  22. SERTRALINE [Concomitant]
     Indication: ANXIETY
     Route: 048
  23. TAMSULOSIN [Concomitant]
     Indication: BENIGN PROSTATIC HYPERPLASIA
     Dosage: EC CAPSULE
     Route: 048
  24. TICAGRELOR [Concomitant]
     Indication: CORONARY ARTERY DISEASE

REACTIONS (4)
  - Prostate cancer [Unknown]
  - Photosensitivity reaction [Not Recovered/Not Resolved]
  - Lip swelling [Not Recovered/Not Resolved]
  - Overdose [Not Recovered/Not Resolved]
